FAERS Safety Report 8603468-X (Version None)
Quarter: 2012Q3

REPORT INFORMATION
  Report Type: 
  Country: None (occurrence: None)
  Receive Date: 20120817
  Receipt Date: 20120810
  Transmission Date: 20120928
  Serious: Yes (Other)
  Sender: FDA-Public Use
  Company Number: JP-PFIZER INC-2012197598

PATIENT
  Age: 37 Year
  Sex: Male

DRUGS (3)
  1. LYRICA [Suspect]
     Dosage: 300 MG DAILY
  2. LYRICA [Suspect]
     Indication: PAIN IN EXTREMITY
     Dosage: 150 MG DAILY
     Dates: start: 20101201
  3. LYRICA [Suspect]
     Indication: HYPOAESTHESIA
     Dosage: 450 MG DAILY

REACTIONS (5)
  - CONCUSSION [None]
  - MYDRIASIS [None]
  - ROAD TRAFFIC ACCIDENT [None]
  - DIPLOPIA [None]
  - LIGAMENT SPRAIN [None]
